FAERS Safety Report 21419469 (Version 2)
Quarter: 2022Q4

REPORT INFORMATION
  Report Type: Report from Study
  Country: US (occurrence: US)
  Receive Date: 20221006
  Receipt Date: 20221027
  Transmission Date: 20230112
  Serious: No
  Sender: FDA-Public Use
  Company Number: US-ABBVIE-4131807

PATIENT
  Age: 28 Year
  Sex: Male

DRUGS (3)
  1. SKYRIZI [Suspect]
     Active Substance: RISANKIZUMAB-RZAA
     Indication: Psoriasis
     Dosage: 150 MILLIGRAM WEEK 0 1 IN ONCE
     Route: 058
     Dates: start: 20220711, end: 20220711
  2. SKYRIZI [Suspect]
     Active Substance: RISANKIZUMAB-RZAA
     Dosage: WEEK 4 1 IN ONCE
     Route: 058
     Dates: start: 20220929, end: 20220929
  3. SKYRIZI [Suspect]
     Active Substance: RISANKIZUMAB-RZAA
     Dosage: 150 MILLIGRAM
     Route: 058
     Dates: start: 2022

REACTIONS (7)
  - Device issue [Unknown]
  - Psoriasis [Unknown]
  - Faeces soft [Unknown]
  - Diverticulum [Unknown]
  - Rectal tenesmus [Unknown]
  - Defaecation urgency [Unknown]
  - Incorrect dose administered [Unknown]

NARRATIVE: CASE EVENT DATE: 20220817
